FAERS Safety Report 12893418 (Version 1)
Quarter: 2016Q4

REPORT INFORMATION
  Report Type: Spontaneous
  Country: US (occurrence: US)
  Receive Date: 20161028
  Receipt Date: 20161028
  Transmission Date: 20170207
  Serious: No
  Sender: FDA-Public Use
  Company Number: US-DSJP-DSU-2016-101128

PATIENT
  Age: 82 Year
  Sex: Male

DRUGS (4)
  1. AZOR [Interacting]
     Active Substance: AMLODIPINE BESYLATE\OLMESARTAN MEDOXOMIL
     Dosage: 40/5 MG, QD
     Route: 048
     Dates: start: 201512
  2. POTASSIUM [Interacting]
     Active Substance: POTASSIUM
     Indication: HYPERTENSION
     Dosage: UNK
  3. FUROSEMIDE. [Interacting]
     Active Substance: FUROSEMIDE
     Indication: HYPERTENSION
     Dosage: UNK
  4. AZOR [Suspect]
     Active Substance: AMLODIPINE BESYLATE\OLMESARTAN MEDOXOMIL
     Indication: HYPERTENSION
     Dosage: UNK
     Dates: start: 201512, end: 201512

REACTIONS (2)
  - Drug interaction [Unknown]
  - Dizziness [Unknown]

NARRATIVE: CASE EVENT DATE: 201512
